FAERS Safety Report 9031192 (Version 1)
Quarter: 2013Q1

REPORT INFORMATION
  Report Type: Spontaneous
  Country: US (occurrence: US)
  Receive Date: 20130123
  Receipt Date: 20130123
  Transmission Date: 20140127
  Serious: Yes (Other)
  Sender: FDA-Public Use
  Company Number: CHPA2013US001256

PATIENT
  Age: 74 Year
  Sex: Female

DRUGS (2)
  1. TAVIST ALLERGY [Suspect]
     Indication: HYPERSENSITIVITY
     Dosage: 1 DF, QD
     Route: 048
  2. Z-PAK [Concomitant]
     Indication: ENDODONTIC PROCEDURE
     Dosage: UNK, UNK

REACTIONS (9)
  - Plasma cell myeloma [Recovered/Resolved]
  - Immune system disorder [Recovered/Resolved]
  - Dry skin [Not Recovered/Not Resolved]
  - Pruritus [Not Recovered/Not Resolved]
  - Concomitant disease aggravated [Not Recovered/Not Resolved]
  - Skin discolouration [Unknown]
  - Pain [Unknown]
  - Stem cell transplant [None]
  - Endodontic procedure [None]
